FAERS Safety Report 21707300 (Version 3)
Quarter: 2023Q1

REPORT INFORMATION
  Report Type: Report from Study
  Country: CA (occurrence: CA)
  Receive Date: 20221209
  Receipt Date: 20230317
  Transmission Date: 20230418
  Serious: Yes (Other)
  Sender: FDA-Public Use
  Company Number: CA-ABBVIE-4229316

PATIENT
  Age: 44 Year
  Sex: Male
  Weight: 90.3 kg

DRUGS (24)
  1. UPADACITINIB [Suspect]
     Active Substance: UPADACITINIB
     Indication: Dermatitis atopic
     Route: 048
     Dates: start: 20220404, end: 20221124
  2. ARISTOCORT [Concomitant]
     Active Substance: TRIAMCINOLONE DIACETATE
     Indication: Impetigo
     Dosage: 1 APPLICATION
     Route: 061
     Dates: start: 20220503
  3. ARISTOCORT [Concomitant]
     Active Substance: TRIAMCINOLONE DIACETATE
     Indication: Impetigo
     Dosage: 1 APPLICATION? 0.1%
     Route: 061
     Dates: start: 202202
  4. FOLIC ACID [Concomitant]
     Active Substance: FOLIC ACID
     Indication: Prophylaxis
     Route: 048
     Dates: start: 20221228
  5. DESONIDE [Concomitant]
     Active Substance: DESONIDE
     Indication: Dermatitis atopic
     Dosage: 1 APPLICATION
     Route: 061
     Dates: start: 20220209
  6. DESONIDE [Concomitant]
     Active Substance: DESONIDE
     Indication: Dermatitis atopic
     Dosage: 1 APPLICATION
     Route: 048
     Dates: start: 20220829
  7. DERMA-SMOOTHE/FS [Concomitant]
     Active Substance: FLUOCINOLONE ACETONIDE
     Indication: Dermatitis atopic
     Route: 061
     Dates: start: 20220209
  8. HYDROXYZINE [Concomitant]
     Active Substance: HYDROXYZINE HYDROCHLORIDE
     Indication: Dermatitis atopic
     Dosage: 25 TO 50MG AS REQUIRED
     Route: 048
     Dates: start: 20221006
  9. HYDROXYZINE [Concomitant]
     Active Substance: HYDROXYZINE HYDROCHLORIDE
     Indication: Dermatitis atopic
     Dosage: 50 OR 100 MG
     Route: 048
     Dates: start: 20221212
  10. TOBRADEX [Concomitant]
     Active Substance: DEXAMETHASONE\TOBRAMYCIN
     Indication: Chalazion
     Route: 047
     Dates: start: 20220716, end: 20221015
  11. COSMETICS [Concomitant]
     Active Substance: COSMETICS
     Indication: Chalazion
     Dosage: 1 APPLICATION
     Route: 061
     Dates: start: 20220716
  12. FUCIDIN [Concomitant]
     Active Substance: FUSIDATE SODIUM
     Indication: Impetigo
     Dosage: 1 APPLICATION
     Route: 061
     Dates: start: 20220727
  13. PREDNISONE [Concomitant]
     Active Substance: PREDNISONE
     Indication: Impetigo
     Route: 048
     Dates: start: 20221028, end: 20221101
  14. PREDNISONE [Concomitant]
     Active Substance: PREDNISONE
     Indication: Impetigo
     Route: 048
     Dates: start: 20221102
  15. PREDNISONE [Concomitant]
     Active Substance: PREDNISONE
     Indication: Impetigo
     Route: 048
     Dates: start: 20221212
  16. AMOXICILLIN\CLAVULANATE POTASSIUM [Concomitant]
     Active Substance: AMOXICILLIN\CLAVULANATE POTASSIUM
     Indication: Impetigo
     Dosage: DOSAGE: 1 TABLET
     Route: 048
     Dates: start: 20221028, end: 20221117
  17. ZOPICLONE [Concomitant]
     Active Substance: ZOPICLONE
     Indication: Dermatitis atopic
     Route: 048
     Dates: start: 20221212
  18. SINEQUAN [Concomitant]
     Active Substance: DOXEPIN HYDROCHLORIDE
     Indication: Dermatitis atopic
     Route: 048
     Dates: start: 20230123, end: 20230206
  19. MELATONIN [Concomitant]
     Active Substance: MELATONIN
     Indication: Dermatitis atopic
     Route: 048
     Dates: start: 20221211
  20. CEFADROXIL [Concomitant]
     Active Substance: CEFADROXIL
     Indication: Impetigo
     Route: 048
     Dates: start: 20220928, end: 20221004
  21. EBASTINE [Concomitant]
     Active Substance: EBASTINE
     Indication: Dermatitis atopic
     Route: 048
     Dates: start: 20221220
  22. CLOBETASOL [Concomitant]
     Active Substance: CLOBETASOL
     Indication: Dermatitis atopic
     Dosage: 0.05%?1 APPLICATION
     Route: 061
     Dates: start: 20230109
  23. DOXEPIN [Concomitant]
     Active Substance: DOXEPIN
     Indication: Dermatitis atopic
     Route: 048
     Dates: start: 20230109
  24. AQUAPHOR [Concomitant]
     Active Substance: PETROLATUM
     Indication: Dermatitis atopic
     Dosage: 1 APPLICATION
     Dates: start: 20230109

REACTIONS (2)
  - Cutaneous T-cell lymphoma [Not Recovered/Not Resolved]
  - Lymphoma [Not Recovered/Not Resolved]

NARRATIVE: CASE EVENT DATE: 20221104
